FAERS Safety Report 7733709-2 (Version None)
Quarter: 2011Q3

REPORT INFORMATION
  Report Type: 
  Country: None (occurrence: None)
  Receive Date: 20110902
  Receipt Date: 20110902
  Transmission Date: 20111222
  Serious: Yes (Other)
  Sender: FDA-Public Use
  Company Number: None

PATIENT
  Age: 77 Year
  Sex: Female
  Weight: 49.8957 kg

DRUGS (1)
  1. PRADAXA [Suspect]
     Indication: ATRIAL FIBRILLATION
     Dosage: 1 @ 150MG. 2X DA ORAL
     Route: 048
     Dates: start: 20110609

REACTIONS (2)
  - OESOPHAGEAL PAIN [None]
  - OROPHARYNGEAL PAIN [None]
